FAERS Safety Report 7874299-3 (Version None)
Quarter: 2011Q4

REPORT INFORMATION
  Report Type: 
  Country: None (occurrence: None)
  Receive Date: 20111030
  Receipt Date: 20110518
  Transmission Date: 20120403
  Serious: No
  Sender: FDA-Public Use
  Company Number: US-AMGEN-USASP2011025769

PATIENT
  Age: 46 Year
  Sex: Female

DRUGS (2)
  1. PLAQUENIL [Concomitant]
     Dosage: 1 MG, QD
     Dates: start: 20101001
  2. ENBREL [Suspect]
     Indication: PSORIATIC ARTHROPATHY
     Dosage: 50 MG, QWK
     Dates: start: 20110101, end: 20110507

REACTIONS (7)
  - PAIN IN EXTREMITY [None]
  - JOINT STIFFNESS [None]
  - ARTHRALGIA [None]
  - ORAL HERPES [None]
  - NAUSEA [None]
  - MUSCULOSKELETAL STIFFNESS [None]
  - SINUSITIS [None]
